FAERS Safety Report 10382074 (Version 6)
Quarter: 2015Q2

REPORT INFORMATION
  Report Type: Report from Study
  Country: US (occurrence: US)
  Receive Date: 20140813
  Receipt Date: 20150526
  Transmission Date: 20150821
  Serious: Yes (Hospitalization, Other)
  Sender: FDA-Public Use
  Company Number: US-SA-2014SA106303

PATIENT
  Age: 52 Year
  Sex: Female

DRUGS (3)
  1. AUBAGIO [Suspect]
     Active Substance: TERIFLUNOMIDE
     Indication: MULTIPLE SCLEROSIS
     Route: 048
     Dates: start: 20140521
  2. AUBAGIO [Suspect]
     Active Substance: TERIFLUNOMIDE
     Indication: MULTIPLE SCLEROSIS
     Route: 048
     Dates: start: 20140606, end: 20150301
  3. ACTHAR [Concomitant]
     Active Substance: CORTICOTROPIN
     Indication: MULTIPLE SCLEROSIS
     Dates: start: 2014

REACTIONS (4)
  - Multiple sclerosis relapse [Unknown]
  - Nightmare [Unknown]
  - Drug dose omission [Unknown]
  - Unevaluable event [Unknown]

NARRATIVE: CASE EVENT DATE: 201406
